FAERS Safety Report 6661641-4 (Version None)
Quarter: 2010Q1

REPORT INFORMATION
  Report Type: 
  Country: None (occurrence: None)
  Receive Date: 20100331
  Receipt Date: 20090316
  Transmission Date: 20100710
  Serious: Yes (Other)
  Sender: FDA-Public Use
  Company Number: US-BRISTOL-MYERS SQUIBB COMPANY-14539399

PATIENT
  Age: 59 Year
  Sex: Female

DRUGS (6)
  1. ERBITUX [Suspect]
     Indication: COLON CANCER
     Route: 042
     Dates: start: 20090107
  2. BENADRYL [Concomitant]
     Indication: PREMEDICATION
  3. TAGAMET [Concomitant]
     Indication: PREMEDICATION
  4. ALOXI [Concomitant]
     Indication: PREMEDICATION
  5. DECADRON [Concomitant]
     Indication: PREMEDICATION
  6. TYLENOL-500 [Concomitant]
     Indication: PREMEDICATION

REACTIONS (1)
  - INFUSION RELATED REACTION [None]
